FAERS Safety Report 5145504-1 (Version None)
Quarter: 2006Q4

REPORT INFORMATION
  Report Type: 
  Country: None (occurrence: None)
  Receive Date: 20061101
  Receipt Date: 20061016
  Transmission Date: 20070319
  Serious: Yes (Hospitalization, Other)
  Sender: FDA-Public Use
  Company Number: 2006BI014945

PATIENT
  Age: 39 Year
  Sex: Male
  Weight: 99.7913 kg

DRUGS (3)
  1. AVONEX [Suspect]
     Indication: MULTIPLE SCLEROSIS
     Dosage: SEE IMAGE
     Route: 030
     Dates: start: 20060601, end: 20060811
  2. AVONEX [Suspect]
     Indication: MULTIPLE SCLEROSIS
     Dosage: SEE IMAGE
     Route: 030
     Dates: start: 20060901
  3. .......................... [Concomitant]

REACTIONS (4)
  - DEPRESSION [None]
  - STAPHYLOCOCCAL INFECTION [None]
  - SURGERY [None]
  - WEIGHT INCREASED [None]
